FAERS Safety Report 11741994 (Version 1)
Quarter: 2015Q4

REPORT INFORMATION
  Report Type: Spontaneous
  Country: AU (occurrence: AU)
  Receive Date: 20151116
  Receipt Date: 20151116
  Transmission Date: 20160304
  Serious: Yes (Other)
  Sender: FDA-Public Use
  Company Number: PHHY2015AU147814

PATIENT
  Age: 55 Year
  Sex: Female

DRUGS (2)
  1. DABRAFENIB + TRAMETINIB [Suspect]
     Active Substance: DABRAFENIB\TRAMETINIB
     Indication: BRAF GENE MUTATION
     Dosage: 1 DF (300/2 MG), QD
     Route: 065
  2. DABRAFENIB + TRAMETINIB [Suspect]
     Active Substance: DABRAFENIB\TRAMETINIB
     Indication: METASTATIC MALIGNANT MELANOMA

REACTIONS (2)
  - Disease progression [Unknown]
  - Drug resistance [Unknown]
